FAERS Safety Report 10577503 (Version 12)
Quarter: 2015Q1

REPORT INFORMATION
  Report Type: Report from Study
  Country: GB (occurrence: GB)
  Receive Date: 20141111
  Receipt Date: 20150313
  Transmission Date: 20150720
  Serious: Yes (Hospitalization)
  Sender: FDA-Public Use
  Company Number: GB-MERCK-1410GBR014018

PATIENT
  Age: 53 Year
  Sex: Female
  Weight: 88.8 kg

DRUGS (5)
  1. ACETAMINOPHEN. [Concomitant]
     Active Substance: ACETAMINOPHEN
     Indication: MIGRAINE
     Dosage: TOTAL DAILY DOSE 1 G, PRN
     Route: 048
     Dates: start: 20131221
  2. PEMBROLIZUMAB. [Suspect]
     Active Substance: PEMBROLIZUMAB
     Dosage: 10 MG/KG, QOW
     Route: 042
     Dates: start: 20140703, end: 20140703
  3. IPILIMUMAB [Suspect]
     Active Substance: IPILIMUMAB
     Indication: MALIGNANT MELANOMA
     Dosage: UNK
     Dates: start: 20140721, end: 20140721
  4. ACETAMINOPHEN AND CODEINE [Concomitant]
     Active Substance: ACETAMINOPHEN\CODEINE PHOSPHATE
     Indication: MIGRAINE
     Dosage: TOTAL DAILY DOSE 2 TABLETS, PRN
     Route: 048
     Dates: start: 20131221
  5. PEMBROLIZUMAB. [Suspect]
     Active Substance: PEMBROLIZUMAB
     Indication: MALIGNANT MELANOMA
     Dosage: 10 MG/KG, QOW
     Route: 042
     Dates: start: 20140129, end: 20140619

REACTIONS (3)
  - Drug-induced liver injury [Recovered/Resolved]
  - Pneumonitis [Recovered/Resolved]
  - Autoimmune hepatitis [Recovered/Resolved]

NARRATIVE: CASE EVENT DATE: 20140804
